FAERS Safety Report 23788912 (Version 1)
Quarter: 2024Q2

REPORT INFORMATION
  Report Type: Spontaneous
  Country: GB (occurrence: GB)
  Receive Date: 20240426
  Receipt Date: 20240426
  Transmission Date: 20240715
  Serious: Yes (Death, Other)
  Sender: FDA-Public Use
  Company Number: GB-FreseniusKabi-FK202406694

PATIENT
  Age: 27 Year
  Sex: Female

DRUGS (15)
  1. SMOFLIPID [Suspect]
     Active Substance: FISH OIL\MEDIUM-CHAIN TRIGLYCERIDES\OLIVE OIL\SOYBEAN OIL
     Indication: Parenteral nutrition
     Dates: start: 20240124, end: 20240418
  2. AMINO ACIDS, SOURCE UNSPECIFIED [Suspect]
     Active Substance: AMINO ACIDS, SOURCE UNSPECIFIED
     Indication: Parenteral nutrition
     Dates: start: 20240124, end: 20240418
  3. ERGOCALCIFEROL\PHYTONADIONE\RETINOL\TOCOPHEROL [Suspect]
     Active Substance: ERGOCALCIFEROL\PHYTONADIONE\RETINOL\TOCOPHEROL
     Indication: Parenteral nutrition
     Dates: start: 20240124, end: 20240418
  4. ELECTROLYTES NOS\MINERALS [Suspect]
     Active Substance: ELECTROLYTES NOS\MINERALS
     Indication: Parenteral nutrition
     Dates: start: 20240124, end: 20240418
  5. VITAMINS [Suspect]
     Active Substance: VITAMINS
     Indication: Parenteral nutrition
     Dates: start: 20240124, end: 20240418
  6. DEVICE [Suspect]
     Active Substance: DEVICE
     Indication: Parenteral nutrition
  7. WATER [Suspect]
     Active Substance: WATER
     Indication: Parenteral nutrition
     Dosage: [R] WATER FOR INJECTIONS PH EUR
  8. WATER [Suspect]
     Active Substance: WATER
     Dosage: [R] WATER FOR INJECTIONS PH EUR
  9. WATER [Suspect]
     Active Substance: WATER
     Dosage: WATER FOR TPN FORMULATIONS
  10. CALCIUM CHLORIDE [Suspect]
     Active Substance: CALCIUM CHLORIDE
     Indication: Parenteral nutrition
  11. DEXTROSE [Suspect]
     Active Substance: DEXTROSE\DEXTROSE MONOHYDRATE
     Indication: Parenteral nutrition
  12. MAGNESIUM SULFATE [Suspect]
     Active Substance: MAGNESIUM SULFATE\MAGNESIUM SULFATE HEPTAHYDRATE
     Indication: Parenteral nutrition
  13. POTASSIUM ACETATE [Suspect]
     Active Substance: POTASSIUM ACETATE
     Indication: Parenteral nutrition
  14. SODIUM CHLORIDE [Suspect]
     Active Substance: SODIUM CHLORIDE
     Indication: Parenteral nutrition
  15. SODIUM GLYCEROPHOSPHATE [Suspect]
     Active Substance: SODIUM GLYCEROPHOSPHATE
     Indication: Parenteral nutrition

REACTIONS (1)
  - Cardiac arrest [Fatal]

NARRATIVE: CASE EVENT DATE: 20240418
